FAERS Safety Report 8777141 (Version 1)
Quarter: 2012Q4

REPORT INFORMATION
  Report Type: 
  Country: DE (occurrence: JP)
  Receive Date: 20120911
  Receipt Date: 20120911
  Transmission Date: 20130627
  Serious: Yes (Hospitalization)
  Sender: FDA-Public Use
  Company Number: JP-BRISTOL-MYERS SQUIBB COMPANY-16937252

PATIENT
  Age: 76 Year
  Sex: Male

DRUGS (4)
  1. ERBITUX SOLN FOR INF 5MG/ML [Suspect]
     Indication: RECTAL CANCER
     Route: 041
     Dates: start: 20120615, end: 20120702
  2. TOPOTECIN [Concomitant]
     Indication: RECTAL CANCER
     Route: 042
     Dates: start: 20120615, end: 20120702
  3. CALCIUM FOLINATE [Concomitant]
     Indication: RECTAL CANCER
     Route: 042
     Dates: start: 20120615, end: 20120702
  4. 5-FLUOROURACIL [Concomitant]
     Indication: RECTAL CANCER
     Dosage: 16Jun12-4Jul12 4100mg IV drip
15Jun12-2Jul12 680mg IV bolus
     Route: 041
     Dates: start: 20120616, end: 20120704

REACTIONS (1)
  - Anal prolapse [Recovering/Resolving]
